FAERS Safety Report 5871744-X (Version None)
Quarter: 2008Q3

REPORT INFORMATION
  Report Type: 
  Country: None (occurrence: None)
  Receive Date: 20080905
  Receipt Date: 20080827
  Transmission Date: 20090109
  Serious: Yes (Hospitalization, Other)
  Sender: FDA-Public Use
  Company Number: PL-BRISTOL-MYERS SQUIBB COMPANY-12723284

PATIENT
  Age: 76 Year
  Sex: Female

DRUGS (4)
  1. IRBESARTAN [Suspect]
     Indication: CARDIAC FAILURE
     Dosage: TRT INTERRUPTED 06-OCT-2004
     Route: 048
     Dates: start: 20020828
  2. PROPAFENONE HCL [Concomitant]
     Dates: start: 20040819
  3. ATORVASTATIN [Concomitant]
     Dates: start: 20040818
  4. ASPIRIN [Concomitant]
     Dates: start: 20040815

REACTIONS (1)
  - POLYNEUROPATHY [None]
